FAERS Safety Report 8083543-1 (Version None)
Quarter: 2012Q1

REPORT INFORMATION
  Report Type: 
  Country: None (occurrence: None)
  Receive Date: 20120127
  Receipt Date: 20110118
  Transmission Date: 20120608
  Serious: No
  Sender: FDA-Public Use
  Company Number: US-ABBOTT-11P-163-0698479-00

PATIENT
  Sex: Female
  Weight: 49.032 kg

DRUGS (8)
  1. HUMIRA [Suspect]
     Route: 058
     Dates: start: 20101001
  2. METHOTREXATE [Concomitant]
     Indication: RHEUMATOID ARTHRITIS
     Route: 048
     Dates: end: 20101001
  3. HUMIRA [Suspect]
     Indication: RHEUMATOID ARTHRITIS
     Route: 058
     Dates: start: 20100301, end: 20101001
  4. METHOTREXATE [Concomitant]
     Route: 048
     Dates: start: 20101001
  5. CELEBREX [Concomitant]
     Indication: RHEUMATOID ARTHRITIS
     Route: 048
     Dates: end: 20101001
  6. FOLIC ACID [Concomitant]
     Indication: VITAMIN SUPPLEMENTATION
     Route: 048
  7. SYNTHROID [Concomitant]
     Indication: HYPOTHYROIDISM
     Route: 048
  8. FISH OIL [Concomitant]
     Indication: MEDICAL DIET
     Route: 048

REACTIONS (3)
  - FATIGUE [None]
  - LIVER FUNCTION TEST ABNORMAL [None]
  - VIRAL INFECTION [None]
